FAERS Safety Report 7219746-5 (Version None)
Quarter: 2011Q1

REPORT INFORMATION
  Report Type: 
  Country: None (occurrence: None)
  Receive Date: 20110103
  Receipt Date: 20101222
  Transmission Date: 20110831
  Serious: Yes (Other)
  Sender: FDA-Public Use
  Company Number: US-ACCORD-006839

PATIENT
  Age: 54 Year
  Sex: Female

DRUGS (6)
  1. LISINOPRIL [Concomitant]
  2. SUMATRIPTAN SUCCINATE [Concomitant]
  3. TOPIRAMATE [Suspect]
     Indication: MIGRAINE
     Dosage: 125.00-MG-1.0 DAYS
  4. BUTALBITAL (BUTALBITAL) [Concomitant]
  5. GABAPENTIN [Concomitant]
  6. PROPRANOL (PROPRANOLOL) [Concomitant]

REACTIONS (8)
  - EYE PAIN [None]
  - BLEPHAROSPASM [None]
  - PHOTOPHOBIA [None]
  - PARAESTHESIA [None]
  - CONFUSIONAL STATE [None]
  - MIGRAINE [None]
  - BURNING MOUTH SYNDROME [None]
  - DRY MOUTH [None]
